FAERS Safety Report 25239756 (Version 2)
Quarter: 2025Q2

REPORT INFORMATION
  Report Type: Spontaneous
  Country: TR (occurrence: TR)
  Receive Date: 20250425
  Receipt Date: 20250430
  Transmission Date: 20250717
  Serious: Yes (Hospitalization, Other)
  Sender: PFIZER
  Company Number: TR-PFIZER INC-202500087217

PATIENT
  Sex: Male

DRUGS (4)
  1. METHYLPREDNISOLONE ACETATE [Suspect]
     Active Substance: METHYLPREDNISOLONE ACETATE
     Indication: Thrombocytopenia
  2. METHYLPREDNISOLONE ACETATE [Suspect]
     Active Substance: METHYLPREDNISOLONE ACETATE
     Indication: Intracranial haematoma
     Dosage: 30 MG/KG, 1X/DAY (HIGH DOSE)
  3. METHYLPREDNISOLONE ACETATE [Suspect]
     Active Substance: METHYLPREDNISOLONE ACETATE
     Dosage: 20 MG/KG, 1X/DAY
  4. METHYLPREDNISOLONE ACETATE [Suspect]
     Active Substance: METHYLPREDNISOLONE ACETATE

REACTIONS (2)
  - Bacteraemia [Recovered/Resolved]
  - Off label use [Unknown]
